FAERS Safety Report 24964475 (Version 1)
Quarter: 2025Q1

REPORT INFORMATION
  Report Type: Spontaneous
  Country: FR (occurrence: FR)
  Receive Date: 20250213
  Receipt Date: 20250213
  Transmission Date: 20250409
  Serious: Yes (Other)
  Sender: RANBAXY
  Company Number: FR-AFSSAPS-SE2024000974

PATIENT
  Age: 85 Year
  Sex: Female

DRUGS (2)
  1. CITALOPRAM [Interacting]
     Active Substance: CITALOPRAM
     Indication: Mixed anxiety and depressive disorder
     Dosage: 20 MILLIGRAM, DAILY
     Route: 048
  2. ELIQUIS [Interacting]
     Active Substance: APIXABAN
     Indication: Product used for unknown indication
     Dosage: 10 MILLIGRAM, DAILY 1-0-1
     Route: 048

REACTIONS (2)
  - Haematoma [Not Recovered/Not Resolved]
  - Drug interaction [Not Recovered/Not Resolved]

NARRATIVE: CASE EVENT DATE: 20241201
